FAERS Safety Report 9522335 (Version 1)
Quarter: 2013Q3

REPORT INFORMATION
  Report Type: Spontaneous
  Country: US (occurrence: None)
  Receive Date: 20130911
  Receipt Date: 20130911
  Transmission Date: 20140515
  Serious: No
  Sender: FDA-Public Use
  Company Number: AEUSA201200531

PATIENT
  Age: 71 Year
  Sex: Female
  Weight: 56.7 kg

DRUGS (10)
  1. IGIVNEX [Suspect]
     Indication: CHRONIC LYMPHOCYTIC LEUKAEMIA
     Route: 042
     Dates: start: 201109
  2. IGIVNEX [Suspect]
     Indication: INFECTION
     Route: 042
     Dates: start: 201109
  3. ESTRADIOL [Concomitant]
  4. ESTRADIOL [Concomitant]
  5. LEVOTHYROXINE [Concomitant]
  6. LANSOPRAZOLE [Concomitant]
  7. VALACICLOVIR HYDROCHLORIDE [Concomitant]
  8. SEPTRA DS [Concomitant]
  9. ALLOPURINOL [Concomitant]
  10. ABT 199 [Concomitant]

REACTIONS (1)
  - Hepatitis B core antibody positive [None]
